FAERS Safety Report 14873215 (Version 1)
Quarter: 2018Q2

REPORT INFORMATION
  Report Type: Spontaneous
  Country: US (occurrence: US)
  Receive Date: 20180510
  Receipt Date: 20180510
  Transmission Date: 20180711
  Serious: No
  Sender: FDA-Public Use
  Company Number: US-PFIZER INC-2018188822

PATIENT
  Sex: Female

DRUGS (14)
  1. DOCETAXEL. [Suspect]
     Active Substance: DOCETAXEL
     Indication: BREAST CANCER
     Dosage: 75 MG/M2, EVERY 3 WEEKS (6 CYCLES)
     Route: 042
     Dates: start: 20130323, end: 20130705
  2. LISINOPRIL. [Concomitant]
     Active Substance: LISINOPRIL
  3. IMITREX [Concomitant]
     Active Substance: SUMATRIPTAN SUCCINATE
  4. CARBOPLATIN. [Concomitant]
     Active Substance: CARBOPLATIN
  5. FLONASE /00908302/ [Concomitant]
     Active Substance: MOMETASONE FUROATE
  6. TRAMADOL. [Concomitant]
     Active Substance: TRAMADOL
  7. LIPITOR [Concomitant]
     Active Substance: ATORVASTATIN CALCIUM
     Dosage: UNK
     Dates: start: 2006
  8. ZOLOFT [Concomitant]
     Active Substance: SERTRALINE HYDROCHLORIDE
     Dosage: UNK
     Dates: start: 2006
  9. ALBUTEROL /00139501/ [Concomitant]
     Active Substance: ALBUTEROL
  10. TAXOTERE [Suspect]
     Active Substance: DOCETAXEL
     Indication: BREAST CANCER
     Dosage: 75 MG/M2, EVERY 3 WEEKS (6 CYCLES)
     Route: 042
     Dates: start: 20130323, end: 20130705
  11. TRASTUZUMAB. [Concomitant]
     Active Substance: TRASTUZUMAB
  12. ANASTROZOLE. [Concomitant]
     Active Substance: ANASTROZOLE
  13. METOPROLOL. [Concomitant]
     Active Substance: METOPROLOL
     Dosage: UNK
     Dates: start: 2006
  14. PRILOSEC [Concomitant]
     Active Substance: OMEPRAZOLE MAGNESIUM
     Dosage: UNK
     Dates: start: 2006

REACTIONS (5)
  - Madarosis [Not Recovered/Not Resolved]
  - Hair disorder [Not Recovered/Not Resolved]
  - Alopecia [Not Recovered/Not Resolved]
  - Hair texture abnormal [Not Recovered/Not Resolved]
  - Hair colour changes [Not Recovered/Not Resolved]

NARRATIVE: CASE EVENT DATE: 201307
